FAERS Safety Report 12245918 (Version 1)
Quarter: 2016Q2

REPORT INFORMATION
  Report Type: Spontaneous
  Country: US (occurrence: None)
  Receive Date: 20160406
  Receipt Date: 20160406
  Transmission Date: 20160815
  Serious: Yes (Other)
  Sender: FDA-Public Use
  Company Number: None

PATIENT
  Age: 16 Year
  Sex: Female
  Weight: 93.44 kg

DRUGS (3)
  1. METFORMIN, ER [Suspect]
     Active Substance: METFORMIN HYDROCHLORIDE
     Indication: DIABETES PROPHYLAXIS
     Route: 048
     Dates: start: 20140130, end: 20150122
  2. METFORMIN, ER [Suspect]
     Active Substance: METFORMIN HYDROCHLORIDE
     Indication: ACANTHOSIS NIGRICANS
     Route: 048
     Dates: start: 20140130, end: 20150122
  3. METFORMIN, ER [Suspect]
     Active Substance: METFORMIN HYDROCHLORIDE
     Indication: INSULIN RESISTANCE
     Route: 048
     Dates: start: 20140130, end: 20150122

REACTIONS (2)
  - Nausea [None]
  - Diarrhoea [None]

NARRATIVE: CASE EVENT DATE: 20160301
